FAERS Safety Report 16105184 (Version 1)
Quarter: 2019Q2

REPORT INFORMATION
  Report Type: Spontaneous
  Country: US (occurrence: US)
  Receive Date: 20190321
  Receipt Date: 20190321
  Transmission Date: 20190711
  Serious: Yes (Other)
  Sender: FDA-Public Use
  Company Number: None

PATIENT
  Age: 45 Year
  Sex: Female
  Weight: 90 kg

DRUGS (1)
  1. DIABETIC PATCH (REHMANNIA) [Suspect]
     Active Substance: HERBALS\REHMANNIA GLUTINOSA ROOT
     Indication: DIABETES MELLITUS
     Dosage: ?          OTHER STRENGTH:NONE;QUANTITY:1 PATCH(ES);OTHER FREQUENCY:1 PER 3 DAYS;?
     Route: 062

REACTIONS (4)
  - Dehydration [None]
  - Vomiting [None]
  - Malaise [None]
  - Dizziness [None]

NARRATIVE: CASE EVENT DATE: 20190321
